FAERS Safety Report 12547830 (Version 1)
Quarter: 2016Q3

REPORT INFORMATION
  Report Type: Spontaneous
  Country: GB (occurrence: GB)
  Receive Date: 20160712
  Receipt Date: 20160712
  Transmission Date: 20161109
  Serious: Yes (Hospitalization)
  Sender: FDA-Public Use
  Company Number: GB-ROCHE-1792262

PATIENT
  Age: 52 Year
  Sex: Male
  Weight: 71 kg

DRUGS (27)
  1. GANCICLOVIR. [Suspect]
     Active Substance: GANCICLOVIR
     Indication: CYTOMEGALOVIRUS CHORIORETINITIS
     Route: 042
     Dates: start: 20160616, end: 20160620
  2. CLINDAMYCIN [Concomitant]
     Active Substance: CLINDAMYCIN\CLINDAMYCIN PHOSPHATE
     Route: 065
  3. COTRIMOXAZOLE [Concomitant]
     Active Substance: SULFAMETHOXAZOLE\TRIMETHOPRIM
     Route: 065
  4. REMIFENTANIL [Concomitant]
     Active Substance: REMIFENTANIL
     Route: 065
  5. LEVOFLOXACIN. [Concomitant]
     Active Substance: LEVOFLOXACIN
     Route: 065
  6. MEROPENEM. [Concomitant]
     Active Substance: MEROPENEM
     Route: 065
  7. TINZAPARIN [Concomitant]
     Active Substance: TINZAPARIN
     Route: 065
  8. VALGANCICLOVIR. [Suspect]
     Active Substance: VALGANCICLOVIR
     Indication: CYTOMEGALOVIRUS CHORIORETINITIS
     Route: 048
     Dates: start: 20160621, end: 20160625
  9. AMIODARONE [Concomitant]
     Active Substance: AMIODARONE
     Route: 065
  10. COLECALCIFEROL [Concomitant]
     Active Substance: CHOLECALCIFEROL
     Route: 065
  11. ERYTHROMYCIN. [Concomitant]
     Active Substance: ERYTHROMYCIN
     Route: 065
  12. MIDAZOLAM [Concomitant]
     Active Substance: MIDAZOLAM\MIDAZOLAM HYDROCHLORIDE
     Route: 065
  13. METOCLOPRAMIDE. [Concomitant]
     Active Substance: METOCLOPRAMIDE
     Route: 065
  14. VASOPRESSIN. [Concomitant]
     Active Substance: VASOPRESSIN
     Route: 065
  15. ZANAMIVIR [Concomitant]
     Active Substance: ZANAMIVIR
     Route: 065
  16. CASPOFUNGIN [Concomitant]
     Active Substance: CASPOFUNGIN
     Route: 065
  17. PROPOFOL. [Concomitant]
     Active Substance: PROPOFOL
     Route: 065
  18. FOSFOMYCIN [Concomitant]
     Active Substance: FOSFOMYCIN
     Route: 065
  19. HYDROCORTISONE. [Concomitant]
     Active Substance: HYDROCORTISONE
     Route: 065
  20. MICAFUNGIN [Concomitant]
     Active Substance: MICAFUNGIN
     Route: 065
  21. RANITIDINE. [Concomitant]
     Active Substance: RANITIDINE
     Route: 065
  22. RIFAMPICIN [Concomitant]
     Active Substance: RIFAMPIN
     Route: 065
  23. LINEZOLID. [Concomitant]
     Active Substance: LINEZOLID
     Route: 065
  24. BISOPROLOL [Concomitant]
     Active Substance: BISOPROLOL
     Route: 065
  25. METRONIDAZOLE. [Concomitant]
     Active Substance: METRONIDAZOLE
     Route: 065
  26. NOREPINEPHRINE [Concomitant]
     Active Substance: NOREPINEPHRINE\NOREPINEPHRINE BITARTRATE
     Route: 065
  27. PIPERACILLIN/TAZOBACTAM [Concomitant]
     Active Substance: PIPERACILLIN SODIUM\TAZOBACTAM SODIUM
     Route: 065

REACTIONS (2)
  - Petit mal epilepsy [Unknown]
  - Seizure [Recovered/Resolved]

NARRATIVE: CASE EVENT DATE: 20160624
